FAERS Safety Report 5066276-5 (Version None)
Quarter: 2006Q3

REPORT INFORMATION
  Report Type: 
  Country: None (occurrence: None)
  Receive Date: 20060731
  Receipt Date: 20060731
  Transmission Date: 20061208
  Serious: Yes (Hospitalization, Other)
  Sender: FDA-Public Use
  Company Number: None

PATIENT
  Age: 68 Year
  Sex: Male
  Weight: 81.9 kg

DRUGS (6)
  1. IFOSFAMIDE [Suspect]
     Indication: RENAL CELL CARCINOMA STAGE UNSPECIFIED
     Dosage: ONCE IV BOLUS
     Route: 040
     Dates: start: 20051024, end: 20051025
  2. METHADONE HCL [Concomitant]
  3. HYTRIN [Concomitant]
  4. PHENERGAN HCL [Concomitant]
  5. MEGACE [Concomitant]
  6. AMBIEN [Concomitant]

REACTIONS (6)
  - AGITATION [None]
  - CYSTITIS HAEMORRHAGIC [None]
  - MENTAL STATUS CHANGES [None]
  - METABOLIC ENCEPHALOPATHY [None]
  - TOXIC INDUCED ENCEPHALOPATHY [None]
  - TREMOR [None]
